FAERS Safety Report 4367929-4 (Version None)
Quarter: 2004Q2

REPORT INFORMATION
  Report Type: 
  Country: None (occurrence: None)
  Receive Date: 20040527
  Receipt Date: 20040519
  Transmission Date: 20050107
  Serious: Yes (Life-Threatening, Hospitalization)
  Sender: FDA-Public Use
  Company Number: 236040

PATIENT
  Age: 23 Year
  Sex: Female
  Weight: 72.6 kg

DRUGS (3)
  1. NOVOLOG MIX 70/30 [Suspect]
     Indication: DIABETES MELLITUS
     Dosage: 62 IU, QD
     Dates: start: 20030101
  2. LIPITOR [Concomitant]
  3. CELEXA [Concomitant]

REACTIONS (1)
  - DIABETIC KETOACIDOSIS [None]
